FAERS Safety Report 7561334-5 (Version None)
Quarter: 2011Q2

REPORT INFORMATION
  Report Type: 
  Country: None (occurrence: None)
  Receive Date: 20110621
  Receipt Date: 20101006
  Transmission Date: 20111010
  Serious: No
  Sender: FDA-Public Use
  Company Number: US-ASTRAZENECA-2010SE47333

PATIENT
  Age: 3 Year
  Sex: Male
  Weight: 24 kg

DRUGS (1)
  1. PULMICORT FLEXHALER [Suspect]
     Indication: ASTHMA
     Dosage: 2 INHALATIONS QAM
     Route: 055
     Dates: start: 20100401

REACTIONS (1)
  - POOR QUALITY SLEEP [None]
